FAERS Safety Report 8339260-3 (Version None)
Quarter: 2012Q2

REPORT INFORMATION
  Report Type: 
  Country: None (occurrence: None)
  Receive Date: 20120507
  Receipt Date: 20120425
  Transmission Date: 20120825
  Serious: Yes (Hospitalization, Other)
  Sender: FDA-Public Use
  Company Number: US-SANOFI-AVENTIS-2012SA029390

PATIENT
  Age: 89 Year
  Sex: Male

DRUGS (2)
  1. SOLOSTAR [Suspect]
     Indication: DIABETES MELLITUS
  2. LANTUS [Suspect]
     Indication: DIABETES MELLITUS
     Route: 058

REACTIONS (4)
  - DECUBITUS ULCER [None]
  - RENAL DISORDER [None]
  - BLOOD GLUCOSE DECREASED [None]
  - HAEMATEMESIS [None]
